FAERS Safety Report 5104617-0 (Version None)
Quarter: 2006Q3

REPORT INFORMATION
  Report Type: 
  Country: None (occurrence: None)
  Receive Date: 20060914
  Receipt Date: 20060719
  Transmission Date: 20061208
  Serious: No
  Sender: FDA-Public Use
  Company Number: US-BRISTOL-MYERS SQUIBB COMPANY-13447388

PATIENT
  Age: 63 Year
  Sex: Female

DRUGS (8)
  1. BUSPAR [Suspect]
     Indication: SCHIZOPHRENIA
     Dates: start: 20060622
  2. BUSPAR [Suspect]
     Indication: POST-TRAUMATIC STRESS DISORDER
     Dates: start: 20060622
  3. BUSPAR [Suspect]
     Indication: DEPRESSION
     Dates: start: 20060622
  4. BUSPAR [Suspect]
     Indication: ANXIETY
     Dates: start: 20060622
  5. PREMARIN [Concomitant]
  6. ZOLOFT [Concomitant]
     Dates: start: 19980101
  7. BENADRYL [Concomitant]
     Dates: start: 19850101
  8. HYDROCHLOROTHIAZIDE [Concomitant]
     Dates: start: 19980101

REACTIONS (2)
  - HEADACHE [None]
  - TOOTH DISORDER [None]
